FAERS Safety Report 12586019 (Version 1)
Quarter: 2016Q3

REPORT INFORMATION
  Report Type: Spontaneous
  Country: US (occurrence: None)
  Receive Date: 20160722
  Receipt Date: 20160722
  Transmission Date: 20161109
  Serious: Yes (Death, Life-Threatening, Hospitalization)
  Sender: FDA-Public Use
  Company Number: None

PATIENT
  Age: 52 Year
  Sex: Male
  Weight: 176.9 kg

DRUGS (9)
  1. LISINOPRIL. [Concomitant]
     Active Substance: LISINOPRIL
  2. IBUPROFEN. [Concomitant]
     Active Substance: IBUPROFEN
  3. FUROSEMIDE. [Concomitant]
     Active Substance: FUROSEMIDE
  4. METHADONE [Concomitant]
     Active Substance: METHADONE HYDROCHLORIDE
  5. HUMALOG [Concomitant]
     Active Substance: INSULIN LISPRO
  6. ASPRIN [Concomitant]
     Active Substance: ASPIRIN
  7. INVOKANA [Suspect]
     Active Substance: CANAGLIFLOZIN
     Indication: DIABETES MELLITUS
     Dosage: 1 PILL ONCE DAILY BY MOUTH
     Route: 048
     Dates: start: 201504, end: 20160418
  8. INVOKANA [Concomitant]
     Active Substance: CANAGLIFLOZIN
  9. TUMS [Concomitant]
     Active Substance: CALCIUM CARBONATE

REACTIONS (18)
  - Renal failure [None]
  - Flatulence [None]
  - Drug hypersensitivity [None]
  - Localised infection [None]
  - Back pain [None]
  - Abdominal distension [None]
  - Tremor [None]
  - Blood potassium increased [None]
  - Hypotension [None]
  - Asthenia [None]
  - Chromaturia [None]
  - Leg amputation [None]
  - Acute respiratory distress syndrome [None]
  - Heart rate irregular [None]
  - Hepatic failure [None]
  - Confusional state [None]
  - Dehydration [None]
  - Urinary tract infection [None]

NARRATIVE: CASE EVENT DATE: 20160418
